FAERS Safety Report 22150089 (Version 1)
Quarter: 2023Q1

REPORT INFORMATION
  Report Type: Report from Study
  Country: CA (occurrence: CA)
  Receive Date: 20230329
  Receipt Date: 20230329
  Transmission Date: 20230418
  Serious: Yes (Other)
  Sender: FDA-Public Use
  Company Number: CA-GILEAD-2023-0618168

PATIENT
  Age: 47 Year
  Sex: Female

DRUGS (9)
  1. SACITUZUMAB GOVITECAN-HZIY [Suspect]
     Active Substance: SACITUZUMAB GOVITECAN-HZIY
     Indication: Triple negative breast cancer
     Dosage: 500 MG
     Route: 042
     Dates: start: 20221018
  2. ACETAMINOPHEN [Concomitant]
     Active Substance: ACETAMINOPHEN
     Dosage: 650 MG PO (PRE-MEDICATION PRIOR TO TRODELVY)
  3. ACETAMINOPHEN [Concomitant]
     Active Substance: ACETAMINOPHEN
     Dosage: 650 MG PO (PRE-MEDICATION PRIOR TO TRODELVY)
  4. DIPHENHYDRAMINE [Concomitant]
     Active Substance: DIPHENHYDRAMINE
     Dosage: 50 MG PO (PRE-MEDICATION PRIOR TO TRODELVY)
  5. DIPHENHYDRAMINE [Concomitant]
     Active Substance: DIPHENHYDRAMINE
     Dosage: 50 MGPO (PRE-MEDICATION PRIOR TO TRODELVY)
  6. PREGABALIN [Concomitant]
     Active Substance: PREGABALIN
     Dosage: 50 MG
  7. TYLENOL [Concomitant]
     Active Substance: ACETAMINOPHEN
  8. FAM-TRASTUZUMAB DERUXTECAN-NXKI [Concomitant]
     Active Substance: FAM-TRASTUZUMAB DERUXTECAN-NXKI
  9. TAXOL [Concomitant]
     Active Substance: PACLITAXEL

REACTIONS (4)
  - Disease progression [Unknown]
  - Weight fluctuation [Not Recovered/Not Resolved]
  - Heart rate increased [Unknown]
  - Hypotension [Unknown]

NARRATIVE: CASE EVENT DATE: 20230222
